FAERS Safety Report 8899767 (Version 1)
Quarter: 2012Q4

REPORT INFORMATION
  Report Type: 
  Country: US (occurrence: US)
  Receive Date: 20121108
  Receipt Date: 20121108
  Transmission Date: 20130627
  Serious: No
  Sender: FDA-Public Use
  Company Number: US-AMGEN-USASP2012031976

PATIENT
  Sex: Female
  Weight: 52.16 kg

DRUGS (11)
  1. ENBREL [Suspect]
     Indication: PRODUCT USED FOR UNKNOWN INDICATION
     Dosage: 50 mg, qwk
     Route: 058
  2. XANAX [Concomitant]
     Dosage: 0.25 mg, UNK
  3. OMEPRAZOLE [Concomitant]
     Dosage: 40 mg, UNK
  4. TOPROL [Concomitant]
     Dosage: 200 mg, UNK
  5. HYDROCHLOROTHIAZIDE [Concomitant]
     Dosage: 12.5 mg, UNK
  6. AMITRIPTYLIN [Concomitant]
     Dosage: 150 mg, UNK
  7. METHOTREXATE [Concomitant]
     Dosage: 250 mg, UNK
  8. MULTIVITAMINS WITH MINERALS        /90003801/ [Concomitant]
  9. INDOMETHACIN                       /00003801/ [Concomitant]
     Dosage: 75 mg, UNK
  10. FOLIC ACID [Concomitant]
     Dosage: 1000 mug, UNK
  11. VITAMIN E                          /00110501/ [Concomitant]

REACTIONS (1)
  - Cellulitis staphylococcal [Unknown]
